FAERS Safety Report 13746154 (Version 2)
Quarter: 2017Q3

REPORT INFORMATION
  Report Type: Spontaneous
  Country: US (occurrence: US)
  Receive Date: 20170712
  Receipt Date: 20170821
  Transmission Date: 20171127
  Serious: Yes (Other)
  Sender: FDA-Public Use
  Company Number: US-PFIZER INC-2017295007

PATIENT
  Age: 28 Year
  Sex: Female

DRUGS (13)
  1. INDOMETHACIN /00003801/ [Suspect]
     Active Substance: INDOMETHACIN
     Dosage: 100 MG, DAILY (DECREASED)
  2. ERYTHROMYCIN. [Concomitant]
     Active Substance: ERYTHROMYCIN
     Indication: UTERINE CONTRACTIONS DURING PREGNANCY
     Dosage: UNK
  3. INDOMETHACIN /00003801/ [Suspect]
     Active Substance: INDOMETHACIN
     Dosage: 200 MG, DAILY (INCREASED)
  4. RITODRINE [Concomitant]
     Active Substance: RITODRINE
     Indication: UTERINE CONTRACTIONS DURING PREGNANCY
     Dosage: UNK
  5. INDOMETHACIN /00003801/ [Suspect]
     Active Substance: INDOMETHACIN
     Indication: UTERINE CONTRACTIONS DURING PREGNANCY
     Dosage: UNK
  6. INDOMETHACIN /00003801/ [Suspect]
     Active Substance: INDOMETHACIN
     Dosage: 100 MG, DAILY (DECREASED)
  7. ERYTHROMYCIN. [Concomitant]
     Active Substance: ERYTHROMYCIN
     Dosage: UNK
     Route: 048
  8. PROGESTERONE. [Concomitant]
     Active Substance: PROGESTERONE
     Indication: UTERINE CONTRACTIONS DURING PREGNANCY
     Dosage: UNK (OIL)
  9. MAGNESIUM SULFATE. [Concomitant]
     Active Substance: MAGNESIUM SULFATE
     Indication: UTERINE CONTRACTIONS DURING PREGNANCY
     Dosage: UNK
     Route: 042
  10. INDOMETHACIN /00003801/ [Suspect]
     Active Substance: INDOMETHACIN
     Dosage: 100 MG, DAILY (DECREASED)
  11. PROGESTERONE. [Concomitant]
     Active Substance: PROGESTERONE
     Dosage: UNK (OIL)
     Route: 030
  12. INDOMETHACIN /00003801/ [Suspect]
     Active Substance: INDOMETHACIN
     Dosage: 200 MG, DAILY
  13. INDOMETHACIN /00003801/ [Suspect]
     Active Substance: INDOMETHACIN
     Dosage: 150 MG, DAILY (INCREASED)

REACTIONS (1)
  - Oligohydramnios [Recovered/Resolved]
